FAERS Safety Report 9318567 (Version 1)
Quarter: 2012Q4

REPORT INFORMATION
  Report Type: Spontaneous
  Country: AT (occurrence: None)
  Receive Date: 20121214
  Receipt Date: 20121214
  Transmission Date: 20130627
  Serious: No
  Sender: FDA-Public Use
  Company Number: 2012P1066616

PATIENT
  Sex: Male

DRUGS (1)
  1. INFUMORPH [Suspect]

REACTIONS (3)
  - Underdose [None]
  - Drug effect decreased [None]
  - Device malfunction [None]
